FAERS Safety Report 16991992 (Version 1)
Quarter: 2019Q4

REPORT INFORMATION
  Report Type: Spontaneous
  Country: US (occurrence: US)
  Receive Date: 20190920
  Receipt Date: 20190920
  Transmission Date: 20200122
  Serious: Yes (Hospitalization)
  Sender: FDA-Public Use
  Company Number: None

PATIENT
  Age: 71 Year
  Sex: Female

DRUGS (1)
  1. TOBRAMYCIN, 300 MG [Suspect]
     Active Substance: TOBRAMYCIN
     Route: 055

REACTIONS (1)
  - Hospitalisation [None]
